FAERS Safety Report 15401989 (Version 1)
Quarter: 2018Q3

REPORT INFORMATION
  Report Type: Report from Study
  Country: None (occurrence: NZ)
  Receive Date: 20180919
  Receipt Date: 20180919
  Transmission Date: 20181010
  Serious: Yes (Hospitalization, Other)
  Sender: FDA-Public Use
  Company Number: NZ-ABBVIE-18S-118-2482577-00

PATIENT
  Age: 67 Year
  Sex: Male
  Weight: 62 kg

DRUGS (29)
  1. APO?GABAPENTIN [Concomitant]
     Active Substance: GABAPENTIN
     Indication: PAIN
     Route: 065
  2. CLEXANE [Concomitant]
     Active Substance: ENOXAPARIN SODIUM
     Indication: PROPHYLAXIS
     Route: 065
  3. LORAFIX [Concomitant]
     Indication: PRODUCT USED FOR UNKNOWN INDICATION
  4. PAXAM [Concomitant]
     Active Substance: CLONAZEPAM
     Indication: PAIN
     Route: 065
  5. SORBOLENE WITH GLYCERINE PHARMACY HEALTH [Concomitant]
     Indication: DRY SKIN
     Dosage: FORM STRENGTH=90% (900MG/G); 10% (100MG/G); APPLY FREQUENTLY AS REQUIRED
     Route: 061
  6. MICREME H [Concomitant]
     Indication: PRODUCT USED FOR UNKNOWN INDICATION
     Dosage: FORM STRENGTH=2% (20MG/G); 1% (10MG/G); APPLY TO SKIN AROUND PEG INSERTION SITE
     Route: 061
  7. ARROW?AMITRIPTYLINE [Concomitant]
     Indication: PAIN
     Route: 065
  8. PAXAM [Concomitant]
     Active Substance: CLONAZEPAM
     Route: 065
  9. DAIVOBET [Concomitant]
     Active Substance: BETAMETHASONE DIPROPIONATE\CALCIPOTRIENE
     Indication: PRODUCT USED FOR UNKNOWN INDICATION
     Dosage: FORM STRENGTH=0.005% (50MCG/G); 0.05% (500MCG/G); APPLY AT NIGHT TO SCALP
     Route: 061
  10. LAXSOL [Concomitant]
     Active Substance: DOCUSATE SODIUM\SENNOSIDES A AND B
     Indication: PRODUCT USED FOR UNKNOWN INDICATION
     Dosage: FORM STRENGTH=50MG; 8MG TABLET; UNIT DOSE=2 TABLETS
     Route: 065
  11. AMITRIPTYLINE HYDROCHLORIDE (UNSPECIFIED) [Concomitant]
     Indication: PAIN
     Route: 065
  12. FENTANYL SANDOZ [Concomitant]
     Active Substance: FENTANYL
     Dosage: 12.5MCG/HOUR
     Route: 065
  13. MYCONAIL [Concomitant]
     Indication: PRODUCT USED FOR UNKNOWN INDICATION
     Dosage: APPLICATION; APPLY TO NAILS
     Route: 061
  14. CELECOXIB PFIZER [Concomitant]
     Active Substance: CELECOXIB
     Indication: PRODUCT USED FOR UNKNOWN INDICATION
     Route: 065
  15. SINEMET [Concomitant]
     Active Substance: CARBIDOPA\LEVODOPA
     Indication: PRODUCT USED FOR UNKNOWN INDICATION
     Dosage: 200MG;50MG UP TO TWICE DAILY IF DUODOPA PUMP NOT WORKING AS REQUIRED
     Route: 065
  16. BENZAC AC [Concomitant]
     Active Substance: BENZOYL PEROXIDE
     Indication: PRODUCT USED FOR UNKNOWN INDICATION
     Dosage: APPLY TO SHOULDER FOR THREE DAYS BEFORE SURGERY
     Route: 065
  17. DUODOPA [Suspect]
     Active Substance: CARBIDOPA\LEVODOPA
     Indication: PARKINSON^S DISEASE
     Dosage: MD7.7ML AT 0730HRS,CD5.9ML/HR 0730?2000/2030HRS,3ML/HR OVERNIGHT UNTIL 0730 HRS,ED 1.8ML
     Route: 050
     Dates: start: 2009
  18. APO?PYRIDOXINE [Concomitant]
     Indication: PRODUCT USED FOR UNKNOWN INDICATION
     Route: 065
  19. GABAPENTIN (UNSPECIFIED) [Concomitant]
     Indication: PAIN
     Route: 065
  20. PHARMACARE PARACETAMOL [Concomitant]
     Indication: PRODUCT USED FOR UNKNOWN INDICATION
     Route: 065
  21. RISEDRONATE SANDOZ [Concomitant]
     Indication: PRODUCT USED FOR UNKNOWN INDICATION
     Route: 065
  22. LAEVOLAC [Concomitant]
     Active Substance: LACTULOSE
     Indication: CONSTIPATION
     Dosage: 3.34G/5ML; 20ML UP TO TWICE DAILY WHEN REQUIRED
     Route: 048
  23. MORPHINE HYDROCHLORIDE (UNSPECIFIED) [Concomitant]
     Indication: BREAKTHROUGH PAIN
     Dosage: UP TO EVERY 2 HOURS WHEN REQUIRED
     Route: 048
  24. FORTISIP POWDER [Concomitant]
     Indication: PRODUCT USED FOR UNKNOWN INDICATION
     Dosage: TAKE AS DIRECTED
     Route: 065
  25. PROKINEX [Concomitant]
     Indication: NAUSEA
     Dosage: UP TO TWICE DAILY WHEN REQUIRED
     Route: 065
  26. PROKINEX [Concomitant]
     Indication: VOMITING
  27. FENTANYL SANDOZ [Concomitant]
     Active Substance: FENTANYL
     Indication: PRODUCT USED FOR UNKNOWN INDICATION
     Dosage: 25MCG/HOUR
     Route: 065
  28. LAEVOLAC [Concomitant]
     Active Substance: LACTULOSE
     Dosage: 3.34G/5ML; 10 TO 20ML
     Route: 065
  29. SEVREDOL [Concomitant]
     Active Substance: MORPHINE
     Indication: BREAKTHROUGH PAIN
     Dosage: 5?10 MG UP TO 3 TIMES DAILY AS REQUIRED

REACTIONS (8)
  - Osteoarthritis [Unknown]
  - Musculoskeletal pain [Not Recovered/Not Resolved]
  - Thrombophlebitis [Not Recovered/Not Resolved]
  - Parkinsonian rest tremor [Not Recovered/Not Resolved]
  - Erythema [Not Recovered/Not Resolved]
  - Induration [Not Recovered/Not Resolved]
  - Cellulitis [Unknown]
  - Pain [Recovered/Resolved]

NARRATIVE: CASE EVENT DATE: 2012
